FAERS Safety Report 7757552-3 (Version None)
Quarter: 2011Q3

REPORT INFORMATION
  Report Type: 
  Country: None (occurrence: None)
  Receive Date: 20110916
  Receipt Date: 20110905
  Transmission Date: 20111222
  Serious: Yes (Other)
  Sender: FDA-Public Use
  Company Number: CO-GENENTECH-324247

PATIENT
  Sex: Male

DRUGS (7)
  1. HEDERA HELIX [Concomitant]
     Indication: PRODUCT USED FOR UNKNOWN INDICATION
  2. XOLAIR [Suspect]
     Indication: ASTHMA
     Dosage: UNK AMP, 1/MONTH
     Route: 058
     Dates: start: 20110601, end: 20110801
  3. CEPHALEXIN [Concomitant]
     Indication: PRODUCT USED FOR UNKNOWN INDICATION
  4. CONCOMITANT DRUG [Concomitant]
     Indication: PRODUCT USED FOR UNKNOWN INDICATION
  5. SERETIDE [Concomitant]
     Indication: PRODUCT USED FOR UNKNOWN INDICATION
  6. ALBUTEROL [Concomitant]
     Indication: PRODUCT USED FOR UNKNOWN INDICATION
  7. OMEPRAZOLE [Concomitant]
     Indication: PRODUCT USED FOR UNKNOWN INDICATION

REACTIONS (1)
  - OSTEOMYELITIS [None]
